FAERS Safety Report 6911189-4 (Version None)
Quarter: 2010Q3

REPORT INFORMATION
  Report Type: 
  Country: None (occurrence: None)
  Receive Date: 20100806
  Receipt Date: 20100803
  Transmission Date: 20110219
  Serious: Yes (Life-Threatening)
  Sender: FDA-Public Use
  Company Number: JP-GENENTECH-304363

PATIENT
  Sex: Male

DRUGS (1)
  1. GRTPA [Suspect]
     Indication: EMBOLIC STROKE
     Dosage: 24 MIU, UNK
     Route: 042
     Dates: start: 20100702, end: 20100702

REACTIONS (1)
  - ACUTE MYOCARDIAL INFARCTION [None]
